FAERS Safety Report 8917914 (Version 1)
Quarter: 2012Q4

REPORT INFORMATION
  Report Type: 
  Country: US (occurrence: US)
  Receive Date: 20121120
  Receipt Date: 20121120
  Transmission Date: 20130627
  Serious: Yes (Other)
  Sender: FDA-Public Use
  Company Number: PHHY2012US105033

PATIENT

DRUGS (1)
  1. ASCRIPTIN BUFFERED MAX STRENGTH CAPLETS [Suspect]
     Indication: MIGRAINE
     Route: 048

REACTIONS (3)
  - Breast cancer [Recovered/Resolved]
  - Hypertension [Not Recovered/Not Resolved]
  - Incorrect drug administration duration [Unknown]
